FAERS Safety Report 15517038 (Version 2)
Quarter: 2018Q4

REPORT INFORMATION
  Report Type: Spontaneous
  Country: DE (occurrence: DE)
  Receive Date: 20181017
  Receipt Date: 20181108
  Transmission Date: 20190205
  Serious: Yes (Life-Threatening, Hospitalization, Other)
  Sender: FDA-Public Use
  Company Number: DE-MYLANLABS-2018M1075934

PATIENT
  Age: 10 Year
  Sex: Female
  Weight: 41 kg

DRUGS (5)
  1. OSPOLOT [Concomitant]
     Active Substance: SULTHIAME
     Indication: PRODUCT USED FOR UNKNOWN INDICATION
     Dosage: UNK
  2. IBUPROFEN. [Concomitant]
     Active Substance: IBUPROFEN
     Indication: PRODUCT USED FOR UNKNOWN INDICATION
     Dosage: UNK
  3. AMOXICILLIN/CLAVULANIC ACID [Concomitant]
     Active Substance: AMOXICILLIN\CLAVULANIC ACID
     Indication: PRODUCT USED FOR UNKNOWN INDICATION
     Dosage: UNK
  4. BUCCOLAM [Concomitant]
     Active Substance: MIDAZOLAM HYDROCHLORIDE
     Indication: PRODUCT USED FOR UNKNOWN INDICATION
     Dosage: UNK
  5. LEVETIRACETAM. [Suspect]
     Active Substance: LEVETIRACETAM
     Indication: IDIOPATHIC PARTIAL EPILEPSY
     Dosage: 500 MG, BID
     Route: 048
     Dates: start: 20180212, end: 20180425

REACTIONS (13)
  - Headache [Recovering/Resolving]
  - Scarlet fever [Unknown]
  - Sunburn [Unknown]
  - Lymphadenopathy [Unknown]
  - Ocular icterus [Unknown]
  - Transaminases increased [Unknown]
  - Pyrexia [Unknown]
  - Vomiting [Unknown]
  - Rash generalised [Recovering/Resolving]
  - Chest pain [Recovering/Resolving]
  - Cough [Unknown]
  - Cholestasis [Recovering/Resolving]
  - Hepatic failure [Recovering/Resolving]

NARRATIVE: CASE EVENT DATE: 2018
